FAERS Safety Report 25158519 (Version 1)
Quarter: 2025Q2

REPORT INFORMATION
  Report Type: Spontaneous
  Country: US (occurrence: US)
  Receive Date: 20250404
  Receipt Date: 20250404
  Transmission Date: 20250717
  Serious: No
  Sender: SUNOVION
  Company Number: US-SMPA-2025SPA002791AA

PATIENT

DRUGS (3)
  1. GEMTESA [Suspect]
     Active Substance: VIBEGRON
     Route: 048
  2. GEMTESA [Suspect]
     Active Substance: VIBEGRON
     Route: 048
  3. GEMTESA [Suspect]
     Active Substance: VIBEGRON
     Route: 048

REACTIONS (3)
  - Dysuria [Unknown]
  - Urinary retention [Unknown]
  - Incorrect dose administered [Unknown]
